FAERS Safety Report 8998706 (Version 1)
Quarter: 2013Q1

REPORT INFORMATION
  Report Type: Spontaneous
  Country: US (occurrence: US)
  Receive Date: 20130103
  Receipt Date: 20130103
  Transmission Date: 20140127
  Serious: Yes (Other)
  Sender: FDA-Public Use
  Company Number: US-PFIZER INC-2013001810

PATIENT
  Age: 46 Year
  Sex: Female
  Weight: 71.2 kg

DRUGS (2)
  1. LYRICA [Suspect]
     Indication: PAIN IN EXTREMITY
     Dosage: 150 MG, 4X/DAY
     Route: 048
     Dates: start: 2009
  2. LYRICA [Suspect]
     Indication: PAIN IN EXTREMITY

REACTIONS (2)
  - Trigeminal neuralgia [Unknown]
  - Amnesia [Unknown]
